FAERS Safety Report 5605462-X (Version None)
Quarter: 2008Q1

REPORT INFORMATION
  Report Type: 
  Country: None (occurrence: None)
  Receive Date: 20080124
  Receipt Date: 20080124
  Transmission Date: 20080703
  Serious: No
  Sender: FDA-Public Use
  Company Number: None

PATIENT
  Sex: Female
  Weight: 61 kg

DRUGS (1)
  1. TEMOZOLOMIDE [Suspect]
     Dosage: 875 MG

REACTIONS (1)
  - UNEVALUABLE EVENT [None]
